FAERS Safety Report 23851566 (Version 1)
Quarter: 2024Q2

REPORT INFORMATION
  Report Type: Spontaneous
  Country: US (occurrence: US)
  Receive Date: 20240514
  Receipt Date: 20240514
  Transmission Date: 20240716
  Serious: No
  Sender: FDA-Public Use
  Company Number: US-NOVITIUMPHARMA-2024USNVP00696

PATIENT
  Age: 37 Year
  Sex: Male

DRUGS (4)
  1. ESTRADIOL [Suspect]
     Active Substance: ESTRADIOL
     Indication: Transgender hormonal therapy
     Route: 048
  2. MEDROXYPROGESTERONE [Concomitant]
     Active Substance: MEDROXYPROGESTERONE
     Indication: Product used for unknown indication
  3. BICALUTAMIDE [Concomitant]
     Active Substance: BICALUTAMIDE
     Indication: Product used for unknown indication
  4. FINASTERIDE [Concomitant]
     Active Substance: FINASTERIDE
     Indication: Product used for unknown indication

REACTIONS (3)
  - Alopecia [Unknown]
  - Hair growth abnormal [Unknown]
  - Off label use [Unknown]
